FAERS Safety Report 5358067-2 (Version None)
Quarter: 2007Q2

REPORT INFORMATION
  Report Type: 
  Country: None (occurrence: None)
  Receive Date: 20070530
  Receipt Date: 20070102
  Transmission Date: 20071010
  Serious: Yes (Hospitalization)
  Sender: FDA-Public Use
  Company Number: US200611000405

PATIENT
  Age: 38 Year
  Sex: Female
  Weight: 136.1 kg

DRUGS (1)
  1. ZYPREXA [Suspect]

REACTIONS (6)
  - CARDIAC FAILURE CONGESTIVE [None]
  - CHEST PAIN [None]
  - DRUG EXPOSURE DURING PREGNANCY [None]
  - GESTATIONAL DIABETES [None]
  - HYPERGLYCAEMIA [None]
  - HYPERTENSION [None]
